FAERS Safety Report 9451093 (Version 1)
Quarter: 2013Q3

REPORT INFORMATION
  Report Type: Spontaneous
  Country: SE (occurrence: SE)
  Receive Date: 20130809
  Receipt Date: 20130809
  Transmission Date: 20140515
  Serious: Yes (Hospitalization)
  Sender: FDA-Public Use
  Company Number: SE-TEVA-422618ISR

PATIENT
  Age: 50 Year
  Sex: Female

DRUGS (4)
  1. ENALAPRIL COMP RATIOPHARM [Suspect]
     Dates: start: 2011, end: 20130520
  2. LOSARTAN/HYDROCHLORTIAZIDE TEVA [Suspect]
     Route: 048
     Dates: start: 20130520, end: 20130521
  3. SIMVASTATIN ARROW [Concomitant]
     Route: 048
  4. AMLODIPIN [Concomitant]
     Route: 048

REACTIONS (8)
  - Chest discomfort [Recovered/Resolved]
  - Hypokalaemia [Recovered/Resolved]
  - Electrocardiogram ST segment depression [Recovered/Resolved]
  - Chest pain [Unknown]
  - Decreased appetite [Unknown]
  - Weight decreased [Unknown]
  - Fatigue [Unknown]
  - Cough [Unknown]
